FAERS Safety Report 6811432-6 (Version None)
Quarter: 2010Q2

REPORT INFORMATION
  Report Type: 
  Country: None (occurrence: None)
  Receive Date: 20100630
  Receipt Date: 20100623
  Transmission Date: 20101027
  Serious: Yes (Hospitalization)
  Sender: FDA-Public Use
  Company Number: US-B.I. PHARMACEUTICALS,INC./RIDGEFIELD-2010-BP-07117BP

PATIENT
  Sex: Female

DRUGS (6)
  1. DULCOLAX [Suspect]
     Indication: CONSTIPATION
     Dosage: 20 MG
     Route: 048
     Dates: start: 20100601
  2. LOPRESSOR [Concomitant]
  3. COZAAR [Concomitant]
  4. POTASSIUM [Concomitant]
  5. COUMADIN [Concomitant]
  6. POLYETHYLENE GLYCOL [Concomitant]
     Indication: CONSTIPATION
     Dates: start: 20030101

REACTIONS (4)
  - CHOLECYSTITIS INFECTIVE [None]
  - DIARRHOEA [None]
  - GALLBLADDER DISORDER [None]
  - GASTROINTESTINAL MOTILITY DISORDER [None]
